FAERS Safety Report 16277080 (Version 1)
Quarter: 2019Q2

REPORT INFORMATION
  Report Type: Spontaneous
  Country: US (occurrence: US)
  Receive Date: 20190506
  Receipt Date: 20190506
  Transmission Date: 20190711
  Serious: No
  Sender: FDA-Public Use
  Company Number: US-PFIZER INC-2019186315

PATIENT
  Age: 39 Year
  Sex: Male
  Weight: 81.63 kg

DRUGS (2)
  1. XELJANZ [Suspect]
     Active Substance: TOFACITINIB CITRATE
     Indication: ALOPECIA
     Dosage: UNK
  2. XELJANZ [Suspect]
     Active Substance: TOFACITINIB CITRATE
     Indication: ALOPECIA AREATA

REACTIONS (2)
  - Drug effective for unapproved indication [Unknown]
  - Pre-existing condition improved [Unknown]
